FAERS Safety Report 6883836-7 (Version None)
Quarter: 2010Q3

REPORT INFORMATION
  Report Type: 
  Country: None (occurrence: None)
  Receive Date: 20100729
  Receipt Date: 20100723
  Transmission Date: 20110219
  Serious: Yes (Other)
  Sender: FDA-Public Use
  Company Number: US-RB-000549-10

PATIENT
  Age: 56 Year
  Sex: Male

DRUGS (1)
  1. SUBOXONE [Suspect]
     Indication: PRODUCT USED FOR UNKNOWN INDICATION
     Dosage: UNKNOWN DOSING DETAILS
     Route: 065

REACTIONS (11)
  - ANXIETY [None]
  - DEPRESSION [None]
  - DIZZINESS [None]
  - DRUG WITHDRAWAL SYNDROME [None]
  - FALL [None]
  - HYPERHIDROSIS [None]
  - PANIC ATTACK [None]
  - ROTATOR CUFF SYNDROME [None]
  - STRABISMUS [None]
  - TINNITUS [None]
  - VISION BLURRED [None]
